FAERS Safety Report 4384025-0 (Version None)
Quarter: 2004Q2

REPORT INFORMATION
  Report Type: 
  Country: None (occurrence: None)
  Receive Date: 20040621
  Receipt Date: 20040614
  Transmission Date: 20050107
  Serious: Yes (Hospitalization, Other)
  Sender: FDA-Public Use
  Company Number: KII-2004-0011274

PATIENT
  Age: 53 Year
  Sex: Female

DRUGS (2)
  1. MORPHINE SULFATE [Suspect]
     Indication: DRUG USE FOR UNKNOWN INDICATION
     Dosage: ORAL
     Route: 048
  2. CARISOPRODOL (CARISOPRODOL) [Suspect]
     Indication: DRUG USE FOR UNKNOWN INDICATION
     Dosage: ORAL
     Route: 048

REACTIONS (11)
  - AGITATION [None]
  - BLOOD PRESSURE DIASTOLIC DECREASED [None]
  - CONVULSION [None]
  - GAZE PALSY [None]
  - HEADACHE [None]
  - HYPERTENSION [None]
  - LUNG CREPITATION [None]
  - MOANING [None]
  - MULTIPLE DRUG OVERDOSE [None]
  - PNEUMONIA [None]
  - RESTLESSNESS [None]
